FAERS Safety Report 6602084-9 (Version None)
Quarter: 2010Q1

REPORT INFORMATION
  Report Type: 
  Country: None (occurrence: None)
  Receive Date: 20100225
  Receipt Date: 20100211
  Transmission Date: 20100710
  Serious: Yes (Other)
  Sender: FDA-Public Use
  Company Number: PHEH2007US05368

PATIENT
  Sex: Female
  Weight: 68.027 kg

DRUGS (26)
  1. ESTRADERM [Suspect]
     Indication: MENOPAUSE
     Dates: start: 19910101
  2. ESTRADERM [Suspect]
     Dosage: 0.05 MG, BIW
     Route: 062
     Dates: start: 19920311, end: 19930311
  3. PROVERA [Suspect]
     Indication: MENOPAUSE
     Route: 065
     Dates: start: 19880101, end: 19910101
  4. PROVERA [Suspect]
     Dosage: 10 MG
     Route: 065
     Dates: start: 19901126
  5. PROVERA [Suspect]
     Route: 065
     Dates: start: 19910101
  6. PROVERA [Suspect]
     Dosage: 2.5 MG
     Route: 065
     Dates: end: 20001101
  7. PREMARIN [Suspect]
     Indication: MENOPAUSE
     Dosage: 0.625MG
     Dates: start: 19901126, end: 20001101
  8. PREMARIN [Suspect]
     Dosage: CYCLICAL
     Route: 065
     Dates: start: 19880101, end: 19910101
  9. PREMARIN [Suspect]
     Indication: MENOPAUSE
     Dosage: UNK, UNK
     Route: 061
     Dates: start: 19920311, end: 19971123
  10. CYCRIN [Suspect]
     Indication: MENOPAUSE
     Dosage: 2.5 MG
     Route: 065
     Dates: start: 19971117, end: 19971217
  11. CLIMARA [Suspect]
     Route: 062
  12. MEDROXYPROGESTERONE [Suspect]
     Indication: MENOPAUSE
     Route: 065
     Dates: start: 19910101
  13. HORMONES [Suspect]
     Indication: MENOPAUSE
     Dosage: CREAM UNK
     Route: 061
     Dates: start: 19910101
  14. PREDNISONE [Concomitant]
     Indication: RHEUMATOID ARTHRITIS
     Dosage: CYCLICAL
     Dates: start: 19880101, end: 19910101
  15. METHOTREXATE [Concomitant]
     Indication: RHEUMATOID ARTHRITIS
  16. TAMOXIFEN CITRATE [Concomitant]
     Indication: BREAST CANCER
     Dosage: 10MG BID
  17. ZOLOFT [Concomitant]
     Indication: DEPRESSION
  18. PAXIL [Concomitant]
     Indication: DEPRESSION
  19. ZANTAC [Concomitant]
  20. ASPIRIN [Concomitant]
     Dosage: 81 MG, UNK
  21. MAGNESIUM [Concomitant]
  22. FOLIC ACID [Concomitant]
  23. CALTRATE [Concomitant]
  24. FOSAMAX [Concomitant]
  25. PLAVIX [Concomitant]
  26. TRICOR [Concomitant]

REACTIONS (26)
  - ABDOMINAL PAIN [None]
  - AMNESIA [None]
  - ARTERIOSCLEROSIS [None]
  - BREAST CANCER [None]
  - BREAST HYPERPLASIA [None]
  - BREAST MASS [None]
  - CHEST PAIN [None]
  - CHOLELITHOTOMY [None]
  - CHRONIC OBSTRUCTIVE PULMONARY DISEASE [None]
  - DEPRESSION [None]
  - DIZZINESS [None]
  - DYSPEPSIA [None]
  - FATIGUE [None]
  - FIBROCYSTIC BREAST DISEASE [None]
  - HIATUS HERNIA [None]
  - LIVER FUNCTION TEST ABNORMAL [None]
  - LYMPHADENECTOMY [None]
  - MALIGNANT BREAST LUMP REMOVAL [None]
  - MASTECTOMY [None]
  - METATARSAL EXCISION [None]
  - NAUSEA [None]
  - OVARIAN CYST [None]
  - PELVIC PAIN [None]
  - RADIOTHERAPY [None]
  - UTERINE LEIOMYOMA [None]
  - VISUAL IMPAIRMENT [None]
